FAERS Safety Report 19872171 (Version 1)
Quarter: 2021Q3

REPORT INFORMATION
  Report Type: Spontaneous
  Country: US (occurrence: US)
  Receive Date: 20210923
  Receipt Date: 20210923
  Transmission Date: 20211014
  Serious: Yes (Other)
  Sender: FDA-Public Use
  Company Number: US-EMD SERONO-9265647

PATIENT
  Sex: Female

DRUGS (1)
  1. GONAL?F [Suspect]
     Active Substance: FOLLITROPIN
     Indication: PRODUCT USED FOR UNKNOWN INDICATION

REACTIONS (5)
  - Infection [Recovering/Resolving]
  - Abortion spontaneous [Recovered/Resolved]
  - Ovarian cyst [Recovered/Resolved]
  - Pain [Recovering/Resolving]
  - Ovarian hyperstimulation syndrome [Recovering/Resolving]

NARRATIVE: CASE EVENT DATE: 202107
